FAERS Safety Report 9314194 (Version 5)
Quarter: 2014Q3

REPORT INFORMATION
  Report Type: Spontaneous
  Country: DK (occurrence: DK)
  Receive Date: 20130529
  Receipt Date: 20140714
  Transmission Date: 20150326
  Serious: Yes (Hospitalization, Other)
  Sender: FDA-Public Use
  Company Number: DK-PFIZER INC-2013162499

PATIENT
  Age: 52 Year
  Sex: Female
  Weight: 73 kg

DRUGS (8)
  1. ENBREL [Suspect]
     Active Substance: ETANERCEPT
     Indication: RHEUMATOID ARTHRITIS
     Dosage: 25 MG, 2X/DAY
     Route: 058
     Dates: start: 20120702, end: 20120924
  2. METEX [Suspect]
     Active Substance: METFORMIN HYDROCHLORIDE
     Indication: RHEUMATOID ARTHRITIS
     Dosage: 15 MG ONCE A WEEK
     Route: 058
     Dates: start: 20101014, end: 20101115
  3. HUMIRA [Suspect]
     Active Substance: ADALIMUMAB
     Indication: RHEUMATOID ARTHRITIS
     Dosage: 40 MG EVERY SECOND WEEK
     Route: 058
     Dates: start: 20110808, end: 20120607
  4. HYDROXYCHLOROQUINE [Concomitant]
     Active Substance: HYDROXYCHLOROQUINE
     Indication: RHEUMATOID ARTHRITIS
     Dosage: UNK
     Route: 048
     Dates: start: 20130214
  5. SALAZOPYRIN [Suspect]
     Active Substance: SULFASALAZINE
     Indication: RHEUMATOID ARTHRITIS
     Dosage: 500 MG, UNK
     Route: 048
     Dates: start: 20130214
  6. METHOTREXATE SODIUM. [Suspect]
     Active Substance: METHOTREXATE SODIUM
     Indication: RHEUMATOID ARTHRITIS
     Dosage: UNK
     Route: 048
     Dates: start: 20100505, end: 20101014
  7. ROACTEMRA [Suspect]
     Active Substance: TOCILIZUMAB
     Indication: RHEUMATOID ARTHRITIS
     Dosage: 560 MG EVERY FOURTH WEEK. STRENGTH: 20 MG/ML.
     Route: 042
     Dates: start: 20121015, end: 20121204
  8. ARAVA [Suspect]
     Active Substance: LEFLUNOMIDE
     Indication: RHEUMATOID ARTHRITIS
     Dosage: 20 MG, DAILY
     Route: 048
     Dates: start: 20110316, end: 20110503

REACTIONS (1)
  - Renal cancer [Recovered/Resolved with Sequelae]

NARRATIVE: CASE EVENT DATE: 20130214
